FAERS Safety Report 9656303 (Version 1)
Quarter: 2013Q4

REPORT INFORMATION
  Report Type: Spontaneous
  Country: CH (occurrence: CH)
  Receive Date: 20131030
  Receipt Date: 20131030
  Transmission Date: 20140711
  Serious: Yes (Other)
  Sender: FDA-Public Use
  Company Number: CH-UCBSA-101573

PATIENT
  Age: 54 Year
  Sex: Male

DRUGS (12)
  1. KEPPRA [Suspect]
     Indication: EPILEPSY
     Route: 048
     Dates: start: 201204
  2. ISONIAZIDE [Suspect]
     Indication: LATENT TUBERCULOSIS
     Route: 048
     Dates: start: 201212
  3. HEPARINE [Suspect]
     Route: 040
     Dates: start: 20130708
  4. ENALAPRIL [Suspect]
     Route: 048
  5. ESOMEPRAZOLE [Suspect]
     Route: 048
  6. METOPROLOL [Suspect]
     Route: 048
  7. SPIRONOLACTON [Suspect]
     Route: 048
  8. OXAZEPAM [Concomitant]
     Route: 048
  9. MORPHINE [Concomitant]
     Dosage: 10 MG 6 X/DAY PO + 5 MG 4 X PER DAY IN RESERVE
     Route: 048
  10. ACENOCOUMAROL [Concomitant]
     Route: 048
     Dates: start: 20130716
  11. VITAMIN B6 [Concomitant]
     Dates: start: 2012
  12. VITAMIN D3 [Concomitant]
     Dates: start: 2012

REACTIONS (1)
  - Cholestatic liver injury [Unknown]
